FAERS Safety Report 25509424 (Version 2)
Quarter: 2025Q3

REPORT INFORMATION
  Report Type: Spontaneous
  Country: JP (occurrence: JP)
  Receive Date: 20250703
  Receipt Date: 20250716
  Transmission Date: 20251021
  Serious: Yes (Hospitalization, Other)
  Sender: CSL BEHRING
  Company Number: JP-BEH-2025210338

PATIENT
  Sex: Female

DRUGS (5)
  1. HUMAN IMMUNOGLOBULIN G [Suspect]
     Active Substance: HUMAN IMMUNOGLOBULIN G
     Indication: Infection prophylaxis
     Route: 064
  2. HUMAN IMMUNOGLOBULIN G [Suspect]
     Active Substance: HUMAN IMMUNOGLOBULIN G
     Route: 042
  3. AMPICILLIN [Concomitant]
     Active Substance: AMPICILLIN
     Indication: Infection prophylaxis
  4. GENTAMICIN [Concomitant]
     Active Substance: GENTAMICIN
     Indication: Infection prophylaxis
  5. FLUCONAZOLE [Concomitant]
     Active Substance: FLUCONAZOLE
     Indication: Infection prophylaxis

REACTIONS (25)
  - Premature baby [Unknown]
  - Premature baby [Unknown]
  - Foetal growth restriction [Unknown]
  - Foetal heart rate deceleration abnormality [Unknown]
  - Baseline foetal heart rate variability disorder [Unknown]
  - Anaemia [Unknown]
  - Erythroblast count increased [Unknown]
  - Haemoglobin decreased [Unknown]
  - Neutropenia [Unknown]
  - Combined immunodeficiency [Unknown]
  - Deafness neurosensory [Unknown]
  - Graft versus host disease [Unknown]
  - Venoocclusive liver disease [Unknown]
  - Venoocclusive disease [Unknown]
  - Engraftment syndrome [Unknown]
  - Graft versus host disease [Unknown]
  - Vascular insufficiency [Unknown]
  - Use of accessory respiratory muscles [Unknown]
  - Pallor [Unknown]
  - Oedema peripheral [Unknown]
  - Hypotonia [Unknown]
  - White blood cell count increased [Unknown]
  - Platelet count decreased [Unknown]
  - Foetal exposure during pregnancy [Unknown]
  - Off label use [Unknown]
